FAERS Safety Report 8984151 (Version 1)
Quarter: 2012Q4

REPORT INFORMATION
  Report Type: Spontaneous
  Country: GB (occurrence: None)
  Receive Date: 20121214
  Receipt Date: 20121214
  Transmission Date: 20130627
  Serious: Yes (Hospitalization)
  Sender: FDA-Public Use
  Company Number: FK201203764

PATIENT
  Age: 92 Year
  Sex: Female

DRUGS (10)
  1. PIPERACILLIN/TAZOBACTAM [Suspect]
     Indication: PNEUMONIA
     Route: 042
     Dates: start: 20121017, end: 20121024
  2. ALENDRONIC ACID (ALENDRONIC ACID) [Concomitant]
  3. AMLODIPINE (AMLODIPINE) [Concomitant]
  4. ACETYLSALICYLIC ACID (ACETYLSALICYLIC ACID) [Concomitant]
  5. BETAHISTINE (BETAHISTINE) [Concomitant]
  6. CITALOPRAM (CITALOPRAM) [Concomitant]
  7. CO-CODAMOL (PANADEINE CO) [Concomitant]
  8. DOXAZOSIN (DOXAZOSIN) [Concomitant]
  9. OMEPRAZOLE (OMEPRAZOLE) [Concomitant]
  10. PARACETAMOL (PARACETAMOL) [Concomitant]

REACTIONS (4)
  - Rash macular [None]
  - Rash generalised [None]
  - Rash pruritic [None]
  - Discomfort [None]
